FAERS Safety Report 6386473-6 (Version None)
Quarter: 2009Q4

REPORT INFORMATION
  Report Type: 
  Country: None (occurrence: None)
  Receive Date: 20091002
  Receipt Date: 20090609
  Transmission Date: 20100525
  Serious: No
  Sender: FDA-Public Use
  Company Number: US-ASTRAZENECA-2009UW14798

PATIENT
  Age: 51 Year
  Sex: Female
  Weight: 49.9 kg

DRUGS (2)
  1. ARIMIDEX [Suspect]
     Indication: BREAST CANCER
     Route: 048
     Dates: start: 20070101
  2. CALCIUM SUPPLEMENTS [Concomitant]

REACTIONS (2)
  - ALOPECIA [None]
  - BONE DISORDER [None]
